FAERS Safety Report 7511936-7 (Version None)
Quarter: 2011Q2

REPORT INFORMATION
  Report Type: 
  Country: None (occurrence: None)
  Receive Date: 20110520
  Receipt Date: 20110509
  Transmission Date: 20111010
  Serious: Yes (Other)
  Sender: FDA-Public Use
  Company Number: B0719307A

PATIENT
  Age: 14 Month
  Sex: Female

DRUGS (1)
  1. CEFUROXIME SODIUM [Suspect]
     Indication: PRODUCT USED FOR UNKNOWN INDICATION
     Dosage: 125 MG

REACTIONS (4)
  - CLOSTRIDIAL INFECTION [None]
  - RECTAL PROLAPSE [None]
  - PSEUDOMEMBRANOUS COLITIS [None]
  - HAEMOGLOBIN DECREASED [None]
